APPROVED DRUG PRODUCT: QLOSI
Active Ingredient: PILOCARPINE HYDROCHLORIDE
Strength: 0.4%
Dosage Form/Route: SOLUTION/DROPS;OPHTHALMIC
Application: N217836 | Product #001
Applicant: ORASIS PHARMACEUTICALS LTD
Approved: Oct 17, 2023 | RLD: Yes | RS: Yes | Type: RX

PATENTS:
Patent 11129812 | Expires: Aug 18, 2037
Patent 10639297 | Expires: Aug 18, 2037
Patent 11974986 | Expires: Aug 18, 2037
Patent 9867810 | Expires: Aug 18, 2037

EXCLUSIVITY:
Code: NP | Date: Oct 17, 2026